FAERS Safety Report 8909556 (Version 1)
Quarter: 2012Q4

REPORT INFORMATION
  Report Type: Spontaneous
  Country: US (occurrence: None)
  Receive Date: 20121107
  Receipt Date: 20121107
  Transmission Date: 20130627
  Serious: Yes (Death)
  Sender: FDA-Public Use
  Company Number: DSA_60699_2012

PATIENT
  Age: 89 Year
  Sex: Female

DRUGS (1)
  1. XENAZINE 12.5 MG (NOT SPECIFIED) [Suspect]
     Indication: CHOREA
     Dosage: (68.75  mg, 
Daily Oral)
     Route: 048
     Dates: start: 20120125, end: 20121017

REACTIONS (1)
  - Death [None]
